FAERS Safety Report 15356748 (Version 5)
Quarter: 2018Q4

REPORT INFORMATION
  Report Type: Spontaneous
  Country: US (occurrence: US)
  Receive Date: 20180906
  Receipt Date: 20181127
  Transmission Date: 20190204
  Serious: No
  Sender: FDA-Public Use
  Company Number: US-SA-2018SA242988

PATIENT
  Sex: Female

DRUGS (2)
  1. TOUJEO [Suspect]
     Active Substance: INSULIN GLARGINE
     Indication: DIABETES MELLITUS
     Dosage: 110 IU, BID
     Route: 065
  2. SEROQUEL [Concomitant]
     Active Substance: QUETIAPINE FUMARATE

REACTIONS (7)
  - Device operational issue [Unknown]
  - Blood glucose increased [Unknown]
  - Sinus disorder [Unknown]
  - Device issue [Unknown]
  - Cough [Unknown]
  - Needle issue [Unknown]
  - Accidental exposure to product [Unknown]
